FAERS Safety Report 4722417-8 (Version None)
Quarter: 2005Q3

REPORT INFORMATION
  Report Type: 
  Country: None (occurrence: None)
  Receive Date: 20050722
  Receipt Date: 20050411
  Transmission Date: 20060218
  Serious: No
  Sender: FDA-Public Use
  Company Number: US-GLAXOSMITHKLINE-A0553609A

PATIENT
  Age: 80 Year
  Sex: Female

DRUGS (9)
  1. AVANDIA [Suspect]
     Dosage: 4MG TWICE PER DAY
     Route: 048
     Dates: start: 20050328, end: 20050411
  2. METFORMIN [Concomitant]
  3. VITAMIN A [Concomitant]
  4. TARKA [Concomitant]
  5. FUROSEMIDE [Concomitant]
  6. HYZAAR [Concomitant]
  7. DIURETIC [Concomitant]
  8. ASPIRIN [Concomitant]
  9. OS-CAL [Concomitant]

REACTIONS (2)
  - FATIGUE [None]
  - FULL BLOOD COUNT INCREASED [None]
